FAERS Safety Report 6502338-0 (Version None)
Quarter: 2009Q4

REPORT INFORMATION
  Report Type: 
  Country: None (occurrence: None)
  Receive Date: 20091211
  Receipt Date: 20091202
  Transmission Date: 20100525
  Serious: Yes (Other)
  Sender: FDA-Public Use
  Company Number: WAES0912USA00918

PATIENT

DRUGS (1)
  1. DECADRON [Suspect]
     Indication: SUBDURAL HAEMATOMA
     Dosage: 4 MG/Q8H PO
     Route: 048

REACTIONS (1)
  - PULMONARY EMBOLISM [None]
